FAERS Safety Report 17316418 (Version 1)
Quarter: 2020Q1

REPORT INFORMATION
  Report Type: Spontaneous
  Country: US (occurrence: US)
  Receive Date: 20200124
  Receipt Date: 20200124
  Transmission Date: 20200409
  Serious: Yes (Other)
  Sender: FDA-Public Use
  Company Number: US-AKORN PHARMACEUTICALS-2020AKN00082

PATIENT

DRUGS (2)
  1. ISOTRETINOIN. [Suspect]
     Active Substance: ISOTRETINOIN
     Indication: RENAL CELL CARCINOMA
     Dosage: 0.25 MG/KG, 2X/DAY (TUESDAY, WEDNESDAY, THURSDAY)
     Route: 048
  2. VORINOSTAT [Concomitant]
     Active Substance: VORINOSTAT
     Indication: RENAL CELL CARCINOMA
     Dosage: 300 MG, 2X/DAY (TUESDAY/WEDNESDAY/THURSDAY)
     Route: 048

REACTIONS (1)
  - Depression [Unknown]
